FAERS Safety Report 6684585-0 (Version None)
Quarter: 2010Q2

REPORT INFORMATION
  Report Type: 
  Country: None (occurrence: None)
  Receive Date: 20100416
  Receipt Date: 20100408
  Transmission Date: 20101027
  Serious: No
  Sender: FDA-Public Use
  Company Number: BR-ROCHE-696623

PATIENT
  Age: 20 Year
  Sex: Female

DRUGS (2)
  1. ROACUTAN [Suspect]
     Indication: ACNE
     Dosage: THERAPY STOP DATE: 2010.
     Route: 048
     Dates: start: 20091101
  2. YAZ [Suspect]
     Indication: CONTRACEPTION
     Dosage: THERAPY STOP DATE: 2010.
     Route: 048

REACTIONS (2)
  - NO ADVERSE EVENT [None]
  - PREGNANCY [None]
